FAERS Safety Report 8975233 (Version 1)
Quarter: 2012Q4

REPORT INFORMATION
  Report Type: 
  Country: US (occurrence: US)
  Receive Date: 20121219
  Receipt Date: 20121219
  Transmission Date: 20130627
  Serious: No
  Sender: FDA-Public Use
  Company Number: US-TARO-2012P1060900

PATIENT
  Age: 58 Year
  Sex: Female
  Weight: 97.52 kg

DRUGS (9)
  1. FLUOROURACIL [Suspect]
     Indication: ACTINIC KERATOSIS
     Route: 061
  2. FAMOTIDINE [Concomitant]
  3. GABAPENTIN [Concomitant]
  4. OPENA ER [Concomitant]
  5. OXYCODONE [Concomitant]
  6. ESTRADIOL [Concomitant]
  7. MEDROXYPROGESTERONE [Concomitant]
  8. RETIN A [Concomitant]
  9. CITALOPRAM [Concomitant]

REACTIONS (3)
  - Drug ineffective [Not Recovered/Not Resolved]
  - Erythema [Recovered/Resolved]
  - Skin exfoliation [Recovered/Resolved]
